FAERS Safety Report 8497898 (Version 3)
Quarter: 2013Q4

REPORT INFORMATION
  Report Type: Report from Study
  Country: CA (occurrence: CA)
  Receive Date: 20120406
  Receipt Date: 20131017
  Transmission Date: 20140711
  Serious: Yes (Hospitalization, Other)
  Sender: FDA-Public Use
  Company Number: CA-PFIZER INC-2012084433

PATIENT
  Age: 68 Year
  Sex: Male

DRUGS (16)
  1. LINEZOLID [Suspect]
     Dosage: UNK
     Dates: start: 20111115, end: 20111201
  2. METHOTREXATE SODIUM [Suspect]
  3. TETRACYCLINE HYDROCHLORIDE [Suspect]
     Indication: SKIN ULCER
  4. BLINDED THERAPY [Suspect]
     Indication: TYPE 2 DIABETES MELLITUS
     Dosage: SAXAGLIPTIN/PLACEBO
     Dates: start: 20101116, end: 20111012
  5. METFORMIN HYDROCHLORIDE [Suspect]
     Indication: TYPE 2 DIABETES MELLITUS
     Dosage: 1000 MG, UNK
     Dates: end: 20111205
  6. NOVORAPID [Suspect]
     Indication: TYPE 2 DIABETES MELLITUS
     Dosage: 45 IU, UNK
     Dates: start: 20110401, end: 20111212
  7. NPH INSULIN [Suspect]
     Indication: TYPE 2 DIABETES MELLITUS
     Dosage: 10 IU, UNK
     Dates: end: 20120327
  8. VENTOLIN [Concomitant]
     Dosage: UNK
     Dates: start: 20111127
  9. ATROVENT [Concomitant]
  10. SEPTRA [Concomitant]
  11. METRONIDAZOLE [Concomitant]
  12. VANCOMYCIN [Concomitant]
     Dosage: UNK
     Dates: start: 20111202, end: 20111206
  13. LEVOFLOXACIN [Concomitant]
     Dosage: UNK
     Dates: start: 20111205, end: 20111206
  14. RANOLAZINE [Concomitant]
  15. IVABRADINE [Concomitant]
  16. TRIMETAZIDINE [Concomitant]

REACTIONS (5)
  - Pancytopenia [Not Recovered/Not Resolved]
  - Pharyngeal inflammation [Not Recovered/Not Resolved]
  - Haematuria [Not Recovered/Not Resolved]
  - Anaemia [Not Recovered/Not Resolved]
  - Thrombocytopenia [Recovered/Resolved]
